FAERS Safety Report 6441210-1 (Version None)
Quarter: 2009Q4

REPORT INFORMATION
  Report Type: 
  Country: None (occurrence: None)
  Receive Date: 20091116
  Receipt Date: 20091104
  Transmission Date: 20100525
  Serious: Yes (Hospitalization, Other)
  Sender: FDA-Public Use
  Company Number: US-PFIZER INC-2009295941

PATIENT
  Age: 39 Year
  Sex: Female

DRUGS (4)
  1. PARACETAMOL [Suspect]
     Indication: SUICIDE ATTEMPT
  2. GLUCOTROL [Suspect]
     Indication: SUICIDE ATTEMPT
  3. VERAPAMIL HCL [Suspect]
     Indication: SUICIDE ATTEMPT
  4. PROZAC [Suspect]
     Indication: SUICIDE ATTEMPT

REACTIONS (4)
  - DRUG LEVEL INCREASED [None]
  - OVERDOSE [None]
  - SUICIDE ATTEMPT [None]
  - TACHYCARDIA [None]
